FAERS Safety Report 10318160 (Version 2)
Quarter: 2015Q1

REPORT INFORMATION
  Report Type: Other
  Country: US (occurrence: US)
  Receive Date: 20140719
  Receipt Date: 20150114
  Transmission Date: 20150720
  Serious: Yes (Hospitalization, Other)
  Sender: FDA-Public Use
  Company Number: US-GSKPPD-2014GSK011345

PATIENT
  Age: 43 Year
  Sex: Male

DRUGS (6)
  1. AVANDIA [Suspect]
     Active Substance: ROSIGLITAZONE MALEATE
     Indication: DIABETES MELLITUS
     Dosage: AVANDIA WAS NOT LISTED AMONG THE PATIENTS RECORDS REVIEWED.
     Route: 048
  2. GLIPIZIDE. [Concomitant]
     Active Substance: GLIPIZIDE
  3. ENALAPRIL [Concomitant]
     Active Substance: ENALAPRIL
  4. INSULIN [Concomitant]
     Active Substance: INSULIN NOS
  5. AMBIEN [Concomitant]
     Active Substance: ZOLPIDEM TARTRATE
  6. NEURONTIN [Concomitant]
     Active Substance: GABAPENTIN

REACTIONS (2)
  - Syncope [Unknown]
  - Cardiac failure congestive [Unknown]

NARRATIVE: CASE EVENT DATE: 20040808
